FAERS Safety Report 9087020 (Version 2)
Quarter: 2013Q1

REPORT INFORMATION
  Report Type: Spontaneous
  Country: JP (occurrence: JP)
  Receive Date: 20130131
  Receipt Date: 20130215
  Transmission Date: 20140127
  Serious: Yes (Life-Threatening, Other)
  Sender: FDA-Public Use
  Company Number: JP-PFIZER INC-2012295120

PATIENT
  Age: 50 Year
  Sex: Male

DRUGS (3)
  1. CHAMPIX [Suspect]
     Indication: NICOTINE DEPENDENCE
     Dosage: 0.5 MG, 1X/DAY
     Route: 048
     Dates: start: 20121106, end: 201211
  2. CHAMPIX [Suspect]
     Dosage: 1 MG, 2X/DAY
     Route: 048
     Dates: start: 20121114
  3. APIDRA [Concomitant]
     Indication: TYPE 1 DIABETES MELLITUS
     Dosage: 8 UNITS IN THE MORNING, 6 UNITS AT NOON, 6 UNITS IN THE EVENING
     Route: 051
     Dates: start: 20090903

REACTIONS (2)
  - Blood glucose decreased [Recovering/Resolving]
  - Weight increased [Unknown]
